FAERS Safety Report 5783100-3 (Version None)
Quarter: 2008Q2

REPORT INFORMATION
  Report Type: 
  Country: None (occurrence: None)
  Receive Date: 20080619
  Receipt Date: 20080619
  Transmission Date: 20081010
  Serious: Yes (Life-Threatening, Hospitalization)
  Sender: FDA-Public Use
  Company Number: None

PATIENT
  Age: 58 Year
  Sex: Male

DRUGS (8)
  1. CYCLOPHOSPHAMIDE [Suspect]
     Indication: CHRONIC LYMPHOCYTIC LEUKAEMIA
     Dosage: IV
     Route: 042
     Dates: start: 20080527, end: 20080527
  2. VINCRISTINE [Suspect]
     Indication: CHRONIC LYMPHOCYTIC LEUKAEMIA
     Dosage: IV
     Route: 042
     Dates: start: 20080527, end: 20080527
  3. WARFARIN SODIUM [Concomitant]
  4. DIGOXIN [Concomitant]
  5. PROTONIX [Concomitant]
  6. ADVAIR DISKUS 100/50 [Concomitant]
  7. PREDNISONE [Concomitant]
  8. METOPROLOL SUCCINATE [Concomitant]

REACTIONS (22)
  - ASTHENIA [None]
  - ATRIAL FIBRILLATION [None]
  - AZOTAEMIA [None]
  - BLISTER [None]
  - CHRONIC LYMPHOCYTIC LEUKAEMIA [None]
  - CONSTIPATION [None]
  - DIARRHOEA [None]
  - DISSEMINATED INTRAVASCULAR COAGULATION [None]
  - DYSPNOEA [None]
  - ERYTHEMA [None]
  - EXFOLIATIVE RASH [None]
  - GENERALISED OEDEMA [None]
  - HYPOTENSION [None]
  - LACTIC ACIDOSIS [None]
  - METABOLIC ACIDOSIS [None]
  - MULTI-ORGAN FAILURE [None]
  - PAIN [None]
  - PURPURA FULMINANS [None]
  - RENAL FAILURE ACUTE [None]
  - RENAL TUBULAR NECROSIS [None]
  - SEPTIC SHOCK [None]
  - SYSTEMIC INFLAMMATORY RESPONSE SYNDROME [None]
